FAERS Safety Report 8179098-3 (Version None)
Quarter: 2012Q1

REPORT INFORMATION
  Report Type: 
  Country: None (occurrence: None)
  Receive Date: 20120227
  Receipt Date: 20120214
  Transmission Date: 20120608
  Serious: Yes (Other)
  Sender: FDA-Public Use
  Company Number: 1184839

PATIENT
  Age: 88 Year
  Sex: Male
  Weight: 32 kg

DRUGS (6)
  1. (BROTIZOLAM) [Concomitant]
  2. LOSARTAN POTASSIUM [Concomitant]
  3. AMLODIPINE BESYLATE [Concomitant]
  4. VANCOMYCIN HYDROCHLORIDE [Suspect]
     Indication: PNEUMONIA STAPHYLOCOCCAL
     Dosage: .5 G GRAM(S), 1 DAY, INTRAVENOUS DRIP
     Route: 041
     Dates: start: 20111020, end: 20111029
  5. FUROSEMIDE [Concomitant]
  6. LANSOPRAZOLE [Concomitant]

REACTIONS (6)
  - HYPERNATRAEMIA [None]
  - CARDIAC FAILURE [None]
  - HYPERURICAEMIA [None]
  - PNEUMONIA STAPHYLOCOCCAL [None]
  - RENAL DISORDER [None]
  - CONDITION AGGRAVATED [None]
